FAERS Safety Report 8777625 (Version 1)
Quarter: 2012Q4

REPORT INFORMATION
  Report Type: 
  Country: US (occurrence: US)
  Receive Date: 20120910
  Receipt Date: 20120910
  Transmission Date: 20130627
  Serious: No
  Sender: FDA-Public Use
  Company Number: US-BAYER-2012-082585

PATIENT

DRUGS (1)
  1. FINACEA [Suspect]
     Indication: SCAR

REACTIONS (1)
  - No adverse event [None]
